FAERS Safety Report 6758022-1 (Version None)
Quarter: 2010Q2

REPORT INFORMATION
  Report Type: 
  Country: None (occurrence: None)
  Receive Date: 20100607
  Receipt Date: 20100525
  Transmission Date: 20101027
  Serious: Yes (Hospitalization)
  Sender: FDA-Public Use
  Company Number: ES-ELI_LILLY_AND_COMPANY-ES201005006878

PATIENT
  Sex: Female
  Weight: 66 kg

DRUGS (8)
  1. FORTEO [Suspect]
     Indication: OSTEOPOROSIS
     Dosage: 20 UG, DAILY (1/D)
     Route: 058
     Dates: start: 20100101, end: 20100101
  2. FORTEO [Suspect]
     Dosage: 20 UG, DAILY (1/D)
     Route: 058
     Dates: start: 20100101
  3. LYRICA [Concomitant]
     Indication: PAIN
     Dosage: 300 MG, EVERY 8 HRS
     Route: 048
     Dates: end: 20100501
  4. NATECAL D [Concomitant]
     Indication: OSTEOPOROSIS
     Dosage: 1 C, UNK
     Route: 048
  5. PARACETAMOL [Concomitant]
     Indication: PAIN
     Dosage: 1 G, EVERY 8 HRS
     Route: 048
  6. ASPIRIN [Concomitant]
     Indication: EMBOLISM
     Dosage: 300 MG, DAILY (1/D)
     Route: 048
  7. OMEPRAZOLE [Concomitant]
     Indication: GASTRIC DISORDER
     Dosage: 20 MG, DAILY (1/D)
     Route: 048
  8. ENALAPRIL [Concomitant]
     Indication: HYPERTENSION
     Dosage: 5 MG, DAILY (1/D)
     Route: 048

REACTIONS (2)
  - INJECTION SITE HAEMATOMA [None]
  - PERITONITIS [None]
